FAERS Safety Report 6676782-5 (Version None)
Quarter: 2010Q2

REPORT INFORMATION
  Report Type: 
  Country: None (occurrence: None)
  Receive Date: 20100412
  Receipt Date: 20100318
  Transmission Date: 20101027
  Serious: No
  Sender: FDA-Public Use
  Company Number: US-ROCHE-692409

PATIENT
  Sex: Male

DRUGS (1)
  1. TAMIFLU [Suspect]
     Indication: DRUG USE FOR UNKNOWN INDICATION
     Dosage: STRENGTH: 15 MG/ML (COMPOUNDED), RECEIVED NO MORE THAN TWO DOSES
     Route: 048
     Dates: start: 20091012

REACTIONS (2)
  - DIARRHOEA [None]
  - OVERDOSE [None]
